FAERS Safety Report 9840756 (Version 3)
Quarter: 2014Q2

REPORT INFORMATION
  Report Type: Report from Study
  Country: TR (occurrence: TR)
  Receive Date: 20140124
  Receipt Date: 20140620
  Transmission Date: 20141212
  Serious: Yes (Other)
  Sender: FDA-Public Use
  Company Number: TR-SANOFI-AVENTIS-2012SA049577

PATIENT
  Age: 41 Year
  Sex: Male
  Weight: 78.5 kg

DRUGS (2)
  1. TERIFLUNOMIDE [Suspect]
     Indication: MULTIPLE SCLEROSIS RELAPSE
     Route: 048
     Dates: start: 20120213
  2. VITAMINS WITH MINERALS [Concomitant]
     Route: 048
     Dates: start: 20111219

REACTIONS (1)
  - Blood creatine phosphokinase increased [Recovered/Resolved]
